FAERS Safety Report 5294615-9 (Version None)
Quarter: 2007Q2

REPORT INFORMATION
  Report Type: 
  Country: None (occurrence: None)
  Receive Date: 20070412
  Receipt Date: 20070405
  Transmission Date: 20071010
  Serious: Yes (Death)
  Sender: FDA-Public Use
  Company Number: GB-GLAXOSMITHKLINE-B0428333A

PATIENT
  Age: 77 Year
  Sex: Male

DRUGS (22)
  1. BECLOMETHASONE DIPROPIONATE [Suspect]
     Dosage: 50UG TWICE PER DAY
     Route: 055
  2. ASPIRIN [Suspect]
     Route: 065
  3. DILTIAZEM [Suspect]
     Dosage: 60MG TWICE PER DAY
     Route: 065
  4. FUROSEMIDE [Suspect]
     Route: 065
  5. GAVISCON [Suspect]
     Dosage: 10ML FOUR TIMES PER DAY
     Route: 065
  6. METOCLOPRAMIDE [Suspect]
     Dosage: 10MG THREE TIMES PER DAY
     Route: 065
  7. NITROLINGUAL [Suspect]
     Route: 065
  8. SALBUTAMOL [Suspect]
     Dosage: 100UG AS REQUIRED
     Route: 055
  9. SPIRONOLACTONE [Suspect]
     Route: 065
  10. ATORVASTATIN CALCIUM [Suspect]
     Route: 065
  11. DEXAMETHASONE [Suspect]
     Route: 065
  12. DOSULEPIN [Suspect]
     Dosage: 75MG PER DAY
     Route: 065
  13. FRUMIL [Suspect]
     Route: 065
  14. LACTULOSE [Suspect]
     Route: 065
  15. LANSOPRAZOLE [Suspect]
     Dosage: 30MG PER DAY
     Route: 065
  16. NOZINAN [Suspect]
     Dosage: 25MG FOUR TIMES PER DAY
     Route: 065
  17. OXYCODONE HCL [Suspect]
     Dosage: 20MG TWICE PER DAY
     Route: 065
  18. OXYGEN [Suspect]
     Route: 055
  19. COMBIVENT [Suspect]
     Indication: CHRONIC OBSTRUCTIVE PULMONARY DISEASE
     Route: 055
     Dates: start: 20030617, end: 20040513
  20. SPIRIVA [Suspect]
     Indication: CHRONIC OBSTRUCTIVE PULMONARY DISEASE
     Route: 055
     Dates: start: 20030617, end: 20040719
  21. SYMBICORT [Suspect]
     Route: 055
  22. TEMAZEPAM [Suspect]
     Dosage: 10MG PER DAY
     Route: 065

REACTIONS (2)
  - LUNG NEOPLASM MALIGNANT [None]
  - MESOTHELIOMA [None]
